FAERS Safety Report 5241065-7 (Version None)
Quarter: 2007Q1

REPORT INFORMATION
  Report Type: 
  Country: None (occurrence: None)
  Receive Date: 20070214
  Receipt Date: 20070214
  Transmission Date: 20070707
  Serious: Yes (Hospitalization, Other)
  Sender: FDA-Public Use
  Company Number: None

PATIENT
  Age: 67 Year
  Sex: Male
  Weight: 88.9 kg

DRUGS (14)
  1. HEPARIN [Suspect]
     Indication: CEREBROVASCULAR ACCIDENT
     Dosage: 5000 UNITS SC Q8HOUR
     Route: 058
     Dates: start: 20061110, end: 20061123
  2. ACETYLCYSTEINE [Concomitant]
  3. ALBUTEROL [Concomitant]
  4. AMIODARONE HCL [Concomitant]
  5. ASPIRIN [Concomitant]
  6. FOLIC ACID [Concomitant]
  7. IPRATROPIUM BROMIDE [Concomitant]
  8. LEVOTHYROXINE SODIUM [Concomitant]
  9. METOPROLOL SUCCINATE EXTENDED RELEASE [Concomitant]
  10. RANITIDINE [Concomitant]
  11. SIMVASTATIN [Concomitant]
  12. SODIUM CHLORIDE [Concomitant]
  13. VANCOMYCIN HYDROCHLORIDE [Concomitant]
  14. PIPERACILLIN AND TAZOBACTAM [Concomitant]

REACTIONS (1)
  - THROMBOCYTOPENIA [None]
